FAERS Safety Report 5692658-4 (Version None)
Quarter: 2008Q2

REPORT INFORMATION
  Report Type: 
  Country: None (occurrence: None)
  Receive Date: 20080401
  Receipt Date: 20080321
  Transmission Date: 20081010
  Serious: Yes (Hospitalization)
  Sender: FDA-Public Use
  Company Number: 2007BI024459

PATIENT
  Age: 41 Year
  Sex: Female

DRUGS (1)
  1. AVONEX [Suspect]
     Indication: MULTIPLE SCLEROSIS
     Dosage: 30 UG; QW; IM
     Route: 030
     Dates: start: 20010810, end: 20080120

REACTIONS (11)
  - ABASIA [None]
  - DEEP VEIN THROMBOSIS [None]
  - FEELING COLD [None]
  - GAIT DISTURBANCE [None]
  - HAEMORRHAGE [None]
  - HYPOTHYROIDISM [None]
  - INJECTION SITE ABSCESS [None]
  - INJECTION SITE BRUISING [None]
  - INJECTION SITE INFECTION [None]
  - OEDEMA PERIPHERAL [None]
  - STAPHYLOCOCCAL INFECTION [None]
